FAERS Safety Report 20743822 (Version 1)
Quarter: 2022Q2

REPORT INFORMATION
  Report Type: Spontaneous
  Country: FR (occurrence: FR)
  Receive Date: 20220425
  Receipt Date: 20220425
  Transmission Date: 20220721
  Serious: Yes (Other)
  Sender: FDA-Public Use
  Company Number: FR-SA-SAC20220422000048

PATIENT

DRUGS (1)
  1. ZALTRAP [Suspect]
     Active Substance: ZIV-AFLIBERCEPT
     Indication: Colorectal cancer metastatic
     Dosage: UNK

REACTIONS (1)
  - Atrioventricular septal defect [Unknown]
